FAERS Safety Report 23487999 (Version 1)
Quarter: 2024Q1

REPORT INFORMATION
  Report Type: Spontaneous
  Country: NO (occurrence: NO)
  Receive Date: 20240206
  Receipt Date: 20240206
  Transmission Date: 20240410
  Serious: Yes (Death, Life-Threatening, Hospitalization, Disabling, Other)
  Sender: FDA-Public Use
  Company Number: NO-BRISTOL-MYERS SQUIBB COMPANY-2024-016861

PATIENT
  Age: 61 Year
  Sex: Male

DRUGS (4)
  1. OPDIVO [Suspect]
     Active Substance: NIVOLUMAB
     Indication: Metastases to lung
     Dosage: EVERY 3 WEEKS
  2. OPDIVO [Suspect]
     Active Substance: NIVOLUMAB
     Indication: Renal cancer
  3. YERVOY [Suspect]
     Active Substance: IPILIMUMAB
     Indication: Metastases to lung
  4. YERVOY [Suspect]
     Active Substance: IPILIMUMAB
     Indication: Renal cancer

REACTIONS (5)
  - Dyspnoea [Unknown]
  - Presyncope [Unknown]
  - Immune-mediated myocarditis [Fatal]
  - Cardiogenic shock [Fatal]
  - Ventricular tachycardia [Fatal]
